FAERS Safety Report 20143142 (Version 3)
Quarter: 2022Q1

REPORT INFORMATION
  Report Type: Report from Study
  Country: US (occurrence: US)
  Receive Date: 20211203
  Receipt Date: 20220121
  Transmission Date: 20220423
  Serious: Yes (Death, Other)
  Sender: FDA-Public Use
  Company Number: US-ACADIA PHARMACEUTICALS INC.-ACA-2021-PIM-003997

PATIENT
  Age: 63 Year
  Sex: Female
  Weight: 40 kg

DRUGS (16)
  1. NUPLAZID [Suspect]
     Active Substance: PIMAVANSERIN TARTRATE
     Indication: Parkinson^s disease psychosis
     Dosage: 34 MILLIGRAM, QD
     Route: 048
     Dates: start: 20210204, end: 20211121
  2. NUPLAZID [Suspect]
     Active Substance: PIMAVANSERIN TARTRATE
     Indication: Hallucination
  3. LIORESAL [Concomitant]
     Active Substance: BACLOFEN
     Indication: Muscle spasms
     Dosage: 10 MG (10 MG BY MOUTH 2 TIMES DAILY AS NEEDED)
     Route: 048
  4. WELLBUTRIN XL [Concomitant]
     Active Substance: BUPROPION HYDROCHLORIDE
     Dosage: 150 MG (1 TAB BY MOUTH EVERY MORNING)
     Route: 048
  5. RYTARY [Concomitant]
     Active Substance: CARBIDOPA\LEVODOPA
     Dosage: 36.25-145 MG CPCR (1CAP QID)
  6. RYTARY [Concomitant]
     Active Substance: CARBIDOPA\LEVODOPA
     Dosage: 61.25-245MG CPCR (2 CAPS QID)
  7. VITAMIN D2 [Concomitant]
     Active Substance: ERGOCALCIFEROL
     Dosage: 50,000 UNITS BY MOUTH EVERY 7 DAYS
     Route: 048
  8. LEXAPRO [Concomitant]
     Active Substance: ESCITALOPRAM OXALATE
     Dosage: 20 MG (1 TAB BY MOUTH DAILY)
     Route: 048
  9. FOLVITE [FOLIC ACID] [Concomitant]
     Dosage: 1 MG BY MOUTH DAILY
     Route: 048
  10. MOTRIN [Concomitant]
     Active Substance: IBUPROFEN
     Indication: Pain
     Dosage: 200 MG BY MOUTH EVERY 6 HRS
  11. IRON [Concomitant]
     Active Substance: IRON
     Dosage: TAKE BY MOUTH
     Route: 048
  12. RHEUMATREX [Concomitant]
     Active Substance: METHOTREXATE SODIUM
     Dosage: 2.5 MG (TAKE 15 MG BY MOUTH EVERY 7 DAYS)
     Route: 048
  13. METHOTREXATE SODIUM [Concomitant]
     Active Substance: METHOTREXATE SODIUM
     Dosage: 50MG/2ML (INJECT 0.6 ML BY SUBCUTANEOUS ROUTE EVERY WEEK)
     Route: 058
  14. SEROQUEL [Concomitant]
     Active Substance: QUETIAPINE FUMARATE
     Indication: Hallucination
     Dosage: 25 MG (1 TAB BY MOUTH NIGHTLY)
  15. SEROQUEL [Concomitant]
     Active Substance: QUETIAPINE FUMARATE
     Indication: Insomnia
  16. ULTRAM [Concomitant]
     Active Substance: TRAMADOL HYDROCHLORIDE
     Indication: Pain
     Dosage: 50 MG (50 MG BY MOUTH EVERY 6HRS)
     Route: 048

REACTIONS (2)
  - Parkinson^s disease [Recovered/Resolved]
  - Dysphagia [Not Recovered/Not Resolved]

NARRATIVE: CASE EVENT DATE: 20211001
